FAERS Safety Report 5390182-X (Version None)
Quarter: 2007Q3

REPORT INFORMATION
  Report Type: 
  Country: None (occurrence: None)
  Receive Date: 20070716
  Receipt Date: 20070716
  Transmission Date: 20080115
  Serious: Yes (Hospitalization)
  Sender: FDA-Public Use
  Company Number: None

PATIENT
  Sex: Male
  Weight: 73.8 kg

DRUGS (3)
  1. CYTARABINE [Suspect]
     Dosage: 1344 MG
  2. DAUNORUBICIN HCL [Suspect]
     Dosage: 261 MG
  3. MYLOTARG [Suspect]
     Dosage: 11.5 MG

REACTIONS (6)
  - DIVERTICULAR PERFORATION [None]
  - PANCYTOPENIA [None]
  - PELVIC ABSCESS [None]
  - POST PROCEDURAL COMPLICATION [None]
  - SEPSIS [None]
  - SMALL INTESTINAL OBSTRUCTION [None]
